FAERS Safety Report 8609707-3 (Version None)
Quarter: 2012Q3

REPORT INFORMATION
  Report Type: 
  Country: None (occurrence: None)
  Receive Date: 20120821
  Receipt Date: 20120806
  Transmission Date: 20120928
  Serious: Yes (Life-Threatening, Disabling)
  Sender: FDA-Public Use
  Company Number: US-BRISTOL-MYERS SQUIBB COMPANY-12197422

PATIENT
  Age: 24 Year
  Sex: Male

DRUGS (11)
  1. VIDEX EC [Suspect]
     Indication: HIV INFECTION
     Dosage: DIVIDED DOSE
     Route: 048
     Dates: start: 20010721, end: 20040514
  2. NORVIR [Suspect]
     Indication: HIV INFECTION
     Dosage: 31MAR2001(INTERRUPTED).CAPS 800MG:19JUN99-31OCT-99.DIVIDED DOSE:01NOV99-24DEC2000.25APR2004
     Route: 048
     Dates: start: 19990619, end: 20080919
  3. ZIAGEN [Suspect]
     Indication: HIV INFECTION
     Dosage: INTERRUPTED FROM 07/25/00 TO 10/20/01 TABS24JUL-25JUL2000.20OCT2001-27OCT2001.
     Route: 048
     Dates: start: 20000724, end: 20011027
  4. VIDEX [Suspect]
     Indication: HIV INFECTION
     Dosage: 250,300,400MG12/19/94-3/7/97,3/07/97-7/21/01,7/21/01,125MG,19DC94-7MAR97(810D),7MR97-21JL01(1598D)
     Route: 048
     Dates: start: 19941219, end: 20010721
  5. CRIXIVAN [Suspect]
     Indication: HIV INFECTION
     Route: 048
     Dates: start: 20000318, end: 20000524
  6. KALETRA [Suspect]
     Indication: HIV INFECTION
     Dosage: 1DF,25DEC2000-24APR2004:1217 DAYS
     Route: 048
     Dates: start: 20001225, end: 20040424
  7. INVIRASE [Suspect]
     Indication: HIV INFECTION
     Dosage: INTER:03/18/00-05/24/00,CAPS 800MG:19JUN99-18MAR2000.DIVIDED DSE:24MAY00-24DEC2000,19JUN1999-24DC00
     Route: 048
     Dates: start: 19990619, end: 20010331
  8. EFAVIRENZ [Suspect]
     Indication: HIV INFECTION
     Dosage: INTERRUPTED FROM 07/25/00 TO 09/25/00  24JUL-25JUL2000,25SEP-02OCT2000. FILM COATED TAB 200 MG
     Route: 048
     Dates: start: 20000724, end: 20001002
  9. EPIVIR [Suspect]
     Indication: HIV INFECTION
     Dosage: TABS
     Route: 048
     Dates: start: 20040515, end: 20080919
  10. CROSS EIGHT M [Concomitant]
     Route: 042
     Dates: start: 19970825
  11. ZERIT [Suspect]
     Indication: HIV INFECTION
     Dosage: 60 MG 8/25/97-27/2/98, 80 MG 2/27-8/3/98, 11/9/98 -6/19/99 AND 12/25/00-10/20/01
     Route: 048
     Dates: start: 19970825, end: 20011020

REACTIONS (3)
  - DIZZINESS [None]
  - PULMONARY HYPERTENSION [None]
  - PALPITATIONS [None]
